FAERS Safety Report 16862018 (Version 4)
Quarter: 2020Q4

REPORT INFORMATION
  Report Type: Report from Study
  Country: US (occurrence: US)
  Receive Date: 20190927
  Receipt Date: 20201111
  Transmission Date: 20210113
  Serious: Yes (Hospitalization)
  Sender: FDA-Public Use
  Company Number: PHHO2019US002338

PATIENT
  Age: 42 Year
  Sex: Female
  Weight: 98.3 kg

DRUGS (8)
  1. BLINDED BAF312 [Suspect]
     Active Substance: SIPONIMOD
     Dosage: CODE NOT BROKEN
     Route: 048
     Dates: start: 20190117, end: 20190131
  2. BLINDED NO TREATMENT RECEIVED [Suspect]
     Active Substance: INVESTIGATIONAL PRODUCT
     Dosage: CODE NOT BROKEN
     Route: 048
     Dates: start: 20190117, end: 20190131
  3. BLINDED BAF312 [Suspect]
     Active Substance: SIPONIMOD
     Indication: CEREBROVASCULAR ACCIDENT
     Dosage: CODE NOT BROKEN
     Route: 048
     Dates: start: 20141119, end: 20160217
  4. BLINDED NO TREATMENT RECEIVED [Suspect]
     Active Substance: INVESTIGATIONAL PRODUCT
     Indication: CEREBROVASCULAR ACCIDENT
     Dosage: CODE NOT BROKEN
     Route: 048
     Dates: start: 20141119, end: 20160217
  5. BLINDED BAF312 [Suspect]
     Active Substance: SIPONIMOD
     Dosage: CODE NOT BROKEN
     Route: 048
     Dates: start: 20190117, end: 20190131
  6. PLACEBO [Suspect]
     Active Substance: UNSPECIFIED INGREDIENT
     Dosage: CODE NOT BROKEN
     Route: 048
     Dates: start: 20190117, end: 20190131
  7. BLINDED BAF312 [Suspect]
     Active Substance: SIPONIMOD
     Indication: CEREBROVASCULAR ACCIDENT
     Dosage: CODE NOT BROKEN
     Route: 048
     Dates: start: 20141119, end: 20160217
  8. PLACEBO [Suspect]
     Active Substance: UNSPECIFIED INGREDIENT
     Indication: CEREBROVASCULAR ACCIDENT
     Dosage: CODE NOT BROKEN
     Route: 048
     Dates: start: 20141119, end: 20160217

REACTIONS (2)
  - Pulmonary embolism [Recovering/Resolving]
  - Deep vein thrombosis [Recovering/Resolving]

NARRATIVE: CASE EVENT DATE: 20190218
